FAERS Safety Report 21293193 (Version 1)
Quarter: 2022Q3

REPORT INFORMATION
  Report Type: Report from Study
  Country: GB (occurrence: GB)
  Receive Date: 20220905
  Receipt Date: 20220905
  Transmission Date: 20221027
  Serious: Yes (Hospitalization, Other)
  Sender: FDA-Public Use
  Company Number: GB-BRISTOL-MYERS SQUIBB COMPANY-BMS-2021-031110

PATIENT
  Age: 79 Year
  Sex: Female
  Weight: 69.3 kg

DRUGS (15)
  1. NIVOLUMAB [Suspect]
     Active Substance: NIVOLUMAB
     Indication: Ovarian cancer recurrent
     Dosage: 240 MILLIGRAM, AS PER PROTOCOL
     Route: 042
     Dates: start: 20200813, end: 20210325
  2. NIVOLUMAB [Suspect]
     Active Substance: NIVOLUMAB
     Indication: Malignant peritoneal neoplasm
  3. NIVOLUMAB [Suspect]
     Active Substance: NIVOLUMAB
     Indication: Fallopian tube cancer
  4. IPILIMUMAB [Suspect]
     Active Substance: IPILIMUMAB
     Indication: Ovarian cancer recurrent
     Route: 042
     Dates: start: 20200813, end: 20210204
  5. IPILIMUMAB [Suspect]
     Active Substance: IPILIMUMAB
     Indication: Malignant peritoneal neoplasm
  6. IPILIMUMAB [Suspect]
     Active Substance: IPILIMUMAB
     Indication: Fallopian tube cancer
  7. RUCAPARIB [Suspect]
     Active Substance: RUCAPARIB
     Indication: Ovarian cancer recurrent
     Dosage: 400 MILLIGRAM,AS PER PROTOCOL
     Route: 048
     Dates: start: 20200813, end: 20210520
  8. RUCAPARIB [Suspect]
     Active Substance: RUCAPARIB
     Indication: Malignant peritoneal neoplasm
     Dosage: UNK
     Route: 065
     Dates: start: 20210429, end: 20210520
  9. RUCAPARIB [Suspect]
     Active Substance: RUCAPARIB
     Indication: Fallopian tube cancer
  10. METRONIDAZOLE [Suspect]
     Active Substance: METRONIDAZOLE
     Indication: Urinary tract infection
     Dosage: 400 MILLIGRAM, TID
     Route: 048
     Dates: start: 20210601, end: 20210608
  11. NITROFURANTOIN [Suspect]
     Active Substance: NITROFURANTOIN
     Indication: Urinary tract infection
     Route: 065
     Dates: start: 20210520
  12. NITROFURANTOIN [Suspect]
     Active Substance: NITROFURANTOIN
     Dosage: 100 MG, TWICE DAILY
     Route: 065
     Dates: start: 20210628
  13. BISOPROLOL [Concomitant]
     Active Substance: BISOPROLOL
     Indication: Arrhythmia
     Dosage: 1.25 MILLIGRAM
     Route: 048
     Dates: start: 202001
  14. LEVOTHYROXINE [Concomitant]
     Active Substance: LEVOTHYROXINE
     Indication: Thyroid disorder
     Dosage: 75 MILLIGRAM
     Route: 048
     Dates: start: 2002
  15. OMEPRAZOLE [Concomitant]
     Active Substance: OMEPRAZOLE
     Indication: Gastrooesophageal reflux disease
     Dosage: 20 MILLIGRAM
     Route: 048
     Dates: start: 2018

REACTIONS (7)
  - Myocarditis [Recovered/Resolved]
  - Diarrhoea [Recovered/Resolved]
  - Enterocolitis infectious [Recovered/Resolved]
  - Ventricular tachycardia [Recovered/Resolved]
  - Pyrexia [Recovered/Resolved]
  - Abdominal pain [Recovered/Resolved]
  - Non-cardiac chest pain [Recovered/Resolved]

NARRATIVE: CASE EVENT DATE: 20210328
